FAERS Safety Report 17096211 (Version 2)
Quarter: 2020Q4

REPORT INFORMATION
  Report Type: Report from Study
  Country: DE (occurrence: DE)
  Receive Date: 20191202
  Receipt Date: 20201102
  Transmission Date: 20210113
  Serious: Yes (Hospitalization)
  Sender: FDA-Public Use
  Company Number: DE-ROCHE-2481980

PATIENT
  Age: 78 Year
  Sex: Male
  Weight: 69 kg

DRUGS (12)
  1. FOLIC ACID. [Suspect]
     Active Substance: FOLIC ACID
     Indication: COLORECTAL CANCER METASTATIC
     Dosage: BOLUS?DATE OF MOST RECENT DOSE OF IRINOTECAN PRIOR TO ONSET OF SAE: 08/APR/2014
     Route: 040
  2. CALCILAC [Concomitant]
     Active Substance: CALCIUM CARBONATE
     Route: 048
  3. TEMAZEPAM. [Concomitant]
     Active Substance: TEMAZEPAM
  4. FOLIC ACID. [Suspect]
     Active Substance: FOLIC ACID
     Dosage: 46 H?DATE OF MOST RECENT DOSE OF IRINOTECAN PRIOR TO ONSET OF SAE: 08/APR/2014
     Route: 042
  5. TORASEMID [Concomitant]
     Active Substance: TORSEMIDE
  6. ACC [Concomitant]
     Active Substance: ACETYLCYSTEINE
  7. CLEXANE [Concomitant]
     Active Substance: ENOXAPARIN SODIUM
     Route: 058
  8. IRINOTECAN [Suspect]
     Active Substance: IRINOTECAN
     Indication: COLORECTAL CANCER METASTATIC
     Dosage: DATE OF MOST RECENT DOSE OF IRINOTECAN PRIOR TO ONSET OF SAE: 08/APR/2014 (335 MG)
     Route: 042
     Dates: start: 20140224
  9. MOXIFLOXACIN. [Concomitant]
     Active Substance: MOXIFLOXACIN
     Route: 048
     Dates: start: 201404, end: 201405
  10. BEVACIZUMAB. [Suspect]
     Active Substance: BEVACIZUMAB
     Indication: COLORECTAL CANCER METASTATIC
     Dosage: DATE OF MOST RECENT DOSE OF BEVACIZUMAB PRIOR TO ONSET OF SAE: 08/APR/2014 (350 MG)
     Route: 042
     Dates: start: 20140224
  11. MIRTAZAPIN [Concomitant]
     Active Substance: MIRTAZAPINE
  12. MERITENE [Concomitant]

REACTIONS (2)
  - Chills [Recovered/Resolved]
  - Device related sepsis [Recovered/Resolved]

NARRATIVE: CASE EVENT DATE: 20140416
